FAERS Safety Report 19080631 (Version 1)
Quarter: 2021Q1

REPORT INFORMATION
  Report Type: Spontaneous
  Country: US (occurrence: US)
  Receive Date: 20210331
  Receipt Date: 20210331
  Transmission Date: 20210420
  Serious: No
  Sender: FDA-Public Use
  Company Number: US-KALEO, INC.-2021KL000022

PATIENT
  Age: 8 Month
  Sex: Female
  Weight: 7.72 kg

DRUGS (2)
  1. AUVI?Q [Suspect]
     Active Substance: EPINEPHRINE
     Indication: ANAPHYLACTIC REACTION
     Dates: start: 20210223, end: 20210223
  2. AUVI?Q [Suspect]
     Active Substance: EPINEPHRINE
     Dates: start: 20210223, end: 20210223

REACTIONS (2)
  - Device failure [Not Recovered/Not Resolved]
  - Drug dose omission by device [Not Recovered/Not Resolved]

NARRATIVE: CASE EVENT DATE: 20210223
